FAERS Safety Report 8434862-8 (Version None)
Quarter: 2012Q2

REPORT INFORMATION
  Report Type: 
  Country: None (occurrence: None)
  Receive Date: 20120614
  Receipt Date: 20120605
  Transmission Date: 20120825
  Serious: Yes (Hospitalization)
  Sender: FDA-Public Use
  Company Number: US-BAYER-2012-021740

PATIENT
  Age: 26 Year
  Sex: Female
  Weight: 74.83 kg

DRUGS (5)
  1. VINATE GT [Concomitant]
     Dosage: UNK
     Route: 048
     Dates: start: 20090410
  2. DROSPIRENONE AND ETHINYL ESTRADIOL [Suspect]
     Indication: CONTRACEPTION
     Dosage: UNK
     Dates: start: 20090415, end: 20090512
  3. IRON [Concomitant]
     Indication: GENERAL PHYSICAL HEALTH DETERIORATION
     Dosage: 65 MG, DAILY
     Route: 048
     Dates: start: 20090410
  4. IBUPROFEN [Concomitant]
     Indication: HEADACHE
     Dosage: 800 MG, UNK
     Route: 048
     Dates: start: 20090410, end: 20090501
  5. IBUPROFEN [Concomitant]
     Dosage: 600 MG, PRN
     Dates: start: 20080602, end: 20110311

REACTIONS (4)
  - PAIN [None]
  - DEEP VEIN THROMBOSIS [None]
  - OEDEMA PERIPHERAL [None]
  - PAIN IN EXTREMITY [None]
